FAERS Safety Report 24056472 (Version 1)
Quarter: 2024Q3

REPORT INFORMATION
  Report Type: Spontaneous
  Country: US (occurrence: US)
  Receive Date: 20240705
  Receipt Date: 20240705
  Transmission Date: 20241017
  Serious: No
  Sender: DR REDDYS
  Company Number: US-DRL-USA-LIT/USA/24/0009231

PATIENT
  Age: 17 Year
  Sex: Female

DRUGS (7)
  1. PROPOFOL [Suspect]
     Active Substance: PROPOFOL
     Indication: Pruritus
  2. URSODIOL [Concomitant]
     Active Substance: URSODIOL
     Indication: Benign recurrent intrahepatic cholestasis
  3. RIFAMPIN [Concomitant]
     Active Substance: RIFAMPIN
     Indication: Benign recurrent intrahepatic cholestasis
  4. colestyramine [cholestyramine] [Concomitant]
     Indication: Benign recurrent intrahepatic cholestasis
  5. DIPHENHYDRAMINE [Concomitant]
     Active Substance: DIPHENHYDRAMINE
     Indication: Benign recurrent intrahepatic cholestasis
  6. HYDROXYZINE [Concomitant]
     Active Substance: HYDROXYZINE HYDROCHLORIDE
     Indication: Benign recurrent intrahepatic cholestasis
     Route: 048
  7. ONDANSETRON [Concomitant]
     Active Substance: ONDANSETRON
     Indication: Vomiting

REACTIONS (1)
  - Drug effective for unapproved indication [Unknown]
